FAERS Safety Report 6849807-1 (Version None)
Quarter: 2010Q3

REPORT INFORMATION
  Report Type: 
  Country: None (occurrence: None)
  Receive Date: 20100716
  Receipt Date: 20080130
  Transmission Date: 20110219
  Serious: No
  Sender: FDA-Public Use
  Company Number: US-PFIZER INC-2007084579

PATIENT
  Sex: Female
  Weight: 67.1 kg

DRUGS (13)
  1. CHANTIX [Suspect]
     Indication: SMOKING CESSATION THERAPY
     Route: 048
     Dates: start: 20071001
  2. ALL OTHER THERAPEUTIC PRODUCTS [Suspect]
  3. NASAL PREPARATIONS [Concomitant]
  4. NEXIUM [Concomitant]
  5. TRIAMTERENE [Concomitant]
  6. ENALAPRIL MALEATE [Concomitant]
  7. ALLEGRA D 24 HOUR [Concomitant]
  8. CLONAZEPAM [Concomitant]
  9. ALBUTEROL [Concomitant]
  10. ASTELIN [Concomitant]
     Route: 045
  11. NASAREL [Concomitant]
     Route: 045
  12. ADVAIR DISKUS 100/50 [Concomitant]
  13. DYAZIDE [Concomitant]

REACTIONS (2)
  - FEELING ABNORMAL [None]
  - INSOMNIA [None]
